FAERS Safety Report 22859453 (Version 3)
Quarter: 2025Q4

REPORT INFORMATION
  Report Type: Spontaneous
  Country: US (occurrence: US)
  Receive Date: 20230824
  Receipt Date: 20251027
  Transmission Date: 20260118
  Serious: No
  Sender: SANOFI AVENTIS
  Company Number: US-SA-SAC20230822001350

PATIENT
  Age: 51 Year
  Sex: Female

DRUGS (1)
  1. DUPIXENT [Suspect]
     Active Substance: DUPILUMAB
     Indication: Nasal polyps
     Dosage: 300 MG, QOW
     Route: 058

REACTIONS (8)
  - Nasopharyngitis [Unknown]
  - Eye pruritus [Recovering/Resolving]
  - Nasal polyps [Unknown]
  - Nasal congestion [Unknown]
  - Parosmia [Unknown]
  - Taste disorder [Unknown]
  - Condition aggravated [Unknown]
  - Injection site erythema [Unknown]
